FAERS Safety Report 7368536-1 (Version None)
Quarter: 2011Q1

REPORT INFORMATION
  Report Type: 
  Country: None (occurrence: None)
  Receive Date: 20110311
  Receipt Date: 20110224
  Transmission Date: 20110831
  Serious: Yes (Other)
  Sender: FDA-Public Use
  Company Number: 2011SP008974

PATIENT
  Age: 63 Year
  Sex: Female

DRUGS (2)
  1. TEMODAL [Suspect]
     Indication: GLIOBLASTOMA
  2. PRIMPERAN TAB [Suspect]
     Indication: PRODUCT USED FOR UNKNOWN INDICATION

REACTIONS (8)
  - CONDITION AGGRAVATED [None]
  - HYPERTONIA [None]
  - TREMOR [None]
  - GAIT DISTURBANCE [None]
  - AKINESIA [None]
  - BEDRIDDEN [None]
  - EXTRAPYRAMIDAL DISORDER [None]
  - METASTASES TO MENINGES [None]
